FAERS Safety Report 6523245-3 (Version None)
Quarter: 2009Q4

REPORT INFORMATION
  Report Type: 
  Country: None (occurrence: None)
  Receive Date: 20091231
  Receipt Date: 20091222
  Transmission Date: 20100525
  Serious: Yes (Other)
  Sender: FDA-Public Use
  Company Number: US-BIOGENIDEC-2009BI031309

PATIENT
  Sex: Female

DRUGS (5)
  1. AVONEX [Suspect]
     Indication: MULTIPLE SCLEROSIS
     Route: 030
     Dates: start: 20010319, end: 20090701
  2. AVONEX [Suspect]
     Route: 030
     Dates: start: 20090701
  3. UNKNOWN ANTICOAGULANT [Concomitant]
     Indication: THROMBOSIS PROPHYLAXIS
  4. UNKNOWN ANTICOAGULANT [Concomitant]
  5. UNKNOWN MEDICATION [Concomitant]
     Indication: ASTHMA

REACTIONS (17)
  - ANORECTAL DISORDER [None]
  - ASTHMA [None]
  - ATAXIA [None]
  - BLADDER DISORDER [None]
  - BRONCHIECTASIS [None]
  - CHRONIC OBSTRUCTIVE PULMONARY DISEASE [None]
  - EYE MOVEMENT DISORDER [None]
  - GRANULOMA [None]
  - INJECTION SITE HAEMATOMA [None]
  - LUNG NEOPLASM MALIGNANT [None]
  - MUSCULAR WEAKNESS [None]
  - MYOKYMIA [None]
  - NEOPLASM MALIGNANT [None]
  - PULMONARY GRANULOMA [None]
  - SLEEP APNOEA SYNDROME [None]
  - STAPHYLOCOCCAL INFECTION [None]
  - VISUAL IMPAIRMENT [None]
